FAERS Safety Report 12670849 (Version 1)
Quarter: 2016Q3

REPORT INFORMATION
  Report Type: Spontaneous
  Country: US (occurrence: None)
  Receive Date: 20160819
  Receipt Date: 20160819
  Transmission Date: 20161109
  Serious: Yes (Death, Other)
  Sender: FDA-Public Use
  Company Number: None

PATIENT
  Age: 18 Year
  Sex: Female
  Weight: 61.69 kg

DRUGS (1)
  1. HEPARIN [Suspect]
     Active Substance: HEPARIN SODIUM

REACTIONS (6)
  - Jugular vein thrombosis [None]
  - Wrong drug administered [None]
  - Aortic thrombosis [None]
  - Vena cava thrombosis [None]
  - Vascular rupture [None]
  - Haemorrhage [None]

NARRATIVE: CASE EVENT DATE: 20140621
